FAERS Safety Report 7345784 (Version 4)
Quarter: 2020Q3

REPORT INFORMATION
  Report Type: Report from Study
  Country: US (occurrence: US)
  Receive Date: 20100406
  Receipt Date: 20100831
  Transmission Date: 20201105
  Serious: Yes (Hospitalization)
  Sender: FDA-Public Use
  Company Number: US-WYE-H14352510

PATIENT
  Age: 61 Year
  Sex: Female
  Weight: 77.8 kg

DRUGS (11)
  1. ATIVAN [Concomitant]
     Active Substance: LORAZEPAM
     Indication: NAUSEA
     Dosage: NOT PROVIDED
     Route: 065
     Dates: start: 20081024
  2. PAMIDRONATE DISODIUM. [Concomitant]
     Active Substance: PAMIDRONATE DISODIUM
     Indication: METASTASES TO BONE
     Dosage: NOT PROVIDED
     Route: 065
     Dates: start: 20081027
  3. COMPAZINE [Concomitant]
     Active Substance: PROCHLORPERAZINE MALEATE
     Indication: NAUSEA
     Dosage: NOT PROVIDED
     Route: 065
     Dates: start: 20100323
  4. METFORMIN [Concomitant]
     Active Substance: METFORMIN HYDROCHLORIDE
     Dosage: PATIENT DID NOT TAKE FOR 2 UNSPECIFIED DAYS ? DOSE NOT PROVIDED
     Route: 065
  5. METFORMIN [Concomitant]
     Active Substance: METFORMIN HYDROCHLORIDE
     Indication: DIABETES MELLITUS
     Dosage: NOT PROVIDED
     Route: 065
     Dates: start: 20080922
  6. CAPECITABINE. [Suspect]
     Active Substance: CAPECITABINE
     Indication: BREAST CANCER
     Route: 048
     Dates: start: 20100315, end: 20100328
  7. MULTIVITAMINS [Concomitant]
     Active Substance: VITAMINS
     Indication: MEDICAL DIET
     Dosage: NOT PROVIDED
     Route: 065
     Dates: start: 20071107
  8. ATENOLOL. [Concomitant]
     Active Substance: ATENOLOL
     Indication: HYPERTENSION
     Dosage: NOT PROVIDED
     Route: 065
     Dates: start: 20071107
  9. LAPATINIB [Suspect]
     Active Substance: LAPATINIB
     Indication: BREAST CANCER
     Route: 048
     Dates: start: 20100315, end: 20100329
  10. CLINDAMYCIN. [Concomitant]
     Active Substance: CLINDAMYCIN
     Dosage: NOT PROVIDED
     Route: 065
     Dates: start: 20100322
  11. INDAPAMIDE. [Concomitant]
     Active Substance: INDAPAMIDE
     Indication: HYPERTENSION
     Dosage: NOT PROVIDED
     Route: 065
     Dates: start: 20081013

REACTIONS (4)
  - Stomatitis [Recovered/Resolved]
  - Hypovolaemia [Recovered/Resolved]
  - Diarrhoea [Recovered/Resolved]
  - Escherichia urinary tract infection [Recovered/Resolved]

NARRATIVE: CASE EVENT DATE: 20100329
